FAERS Safety Report 24617854 (Version 3)
Quarter: 2025Q1

REPORT INFORMATION
  Report Type: Spontaneous
  Country: US (occurrence: US)
  Receive Date: 20241114
  Receipt Date: 20250315
  Transmission Date: 20250409
  Serious: Yes (Other)
  Sender: JOHNSON AND JOHNSON
  Company Number: US-JNJFOC-20241106560

PATIENT
  Sex: Male

DRUGS (4)
  1. TALVEY [Suspect]
     Active Substance: TALQUETAMAB-TGVS
     Indication: Product used for unknown indication
     Route: 065
  2. PREGABALIN [Concomitant]
     Active Substance: PREGABALIN
  3. MORPHINE [Concomitant]
     Active Substance: MORPHINE
  4. CEFTRIAXONE SODIUM\TAZOBACTAM SODIUM [Concomitant]
     Active Substance: CEFTRIAXONE SODIUM\TAZOBACTAM SODIUM

REACTIONS (14)
  - Neuropathy peripheral [Unknown]
  - Dry skin [Unknown]
  - Skin exfoliation [Unknown]
  - Hypohidrosis [Unknown]
  - Flushing [Unknown]
  - Ageusia [Unknown]
  - Hypoaesthesia oral [Unknown]
  - Salivary hyposecretion [Unknown]
  - Saliva altered [Unknown]
  - Nail discolouration [Unknown]
  - Fatigue [Unknown]
  - Onychomadesis [Unknown]
  - Facial pain [Unknown]
  - Salivary hypersecretion [Unknown]
